FAERS Safety Report 16902339 (Version 1)
Quarter: 2019Q4

REPORT INFORMATION
  Report Type: Spontaneous
  Country: FR (occurrence: FR)
  Receive Date: 20191010
  Receipt Date: 20191010
  Transmission Date: 20200122
  Serious: Yes (Hospitalization, Other)
  Sender: FDA-Public Use
  Company Number: FR-GLAXOSMITHKLINE-FR2019180465

PATIENT
  Age: 28 Year
  Sex: Female

DRUGS (3)
  1. METHYLPREDNISOLONE. [Concomitant]
     Active Substance: METHYLPREDNISOLONE
     Indication: HEPATITIS
     Dosage: 100 MG, QD
     Route: 048
     Dates: start: 20181129
  2. PREDNISOLONE. [Concomitant]
     Active Substance: PREDNISOLONE
     Indication: HEPATITIS
     Dosage: 60 MG, QD
     Route: 048
     Dates: start: 20181124, end: 20181128
  3. ACICLOVIR [Suspect]
     Active Substance: ACYCLOVIR
     Indication: HEPATITIS
     Dosage: 10 MG/KG, TID
     Route: 042
     Dates: start: 20181129, end: 20181201

REACTIONS (2)
  - Acute kidney injury [Recovered/Resolved]
  - Crystalluria [Recovered/Resolved]

NARRATIVE: CASE EVENT DATE: 20181201
